FAERS Safety Report 15793836 (Version 1)
Quarter: 2019Q1

REPORT INFORMATION
  Report Type: Spontaneous
  Country: US (occurrence: US)
  Receive Date: 20190107
  Receipt Date: 20190107
  Transmission Date: 20190417
  Serious: No
  Sender: FDA-Public Use
  Company Number: US-EISAI MEDICAL RESEARCH-EC-2019-049942

PATIENT
  Sex: Female

DRUGS (1)
  1. BELVIQ XR [Suspect]
     Active Substance: LORCASERIN HYDROCHLORIDE
     Indication: WEIGHT DECREASED
     Route: 048
     Dates: start: 20181204

REACTIONS (9)
  - Weight increased [Unknown]
  - Dizziness [Unknown]
  - Depression [Unknown]
  - Cognitive disorder [Unknown]
  - Fluid retention [Unknown]
  - Drug ineffective [Unknown]
  - Gait disturbance [Unknown]
  - Fatigue [Unknown]
  - Memory impairment [Unknown]

NARRATIVE: CASE EVENT DATE: 2018
